FAERS Safety Report 4908724-4 (Version None)
Quarter: 2006Q1

REPORT INFORMATION
  Report Type: 
  Country: None (occurrence: None)
  Receive Date: 20060210
  Receipt Date: 20051031
  Transmission Date: 20060701
  Serious: No
  Sender: FDA-Public Use
  Company Number: US-GLAXOSMITHKLINE-A0580282A

PATIENT
  Age: 36 Year
  Sex: Male

DRUGS (2)
  1. PAXIL CR [Suspect]
     Dosage: 1TAB PER DAY
     Route: 048
     Dates: start: 20051001
  2. NO CONCURRENT MEDICATION [Concomitant]

REACTIONS (1)
  - ELECTRIC SHOCK [None]
